FAERS Safety Report 16660999 (Version 1)
Quarter: 2019Q3

REPORT INFORMATION
  Report Type: Spontaneous
  Country: US (occurrence: US)
  Receive Date: 20190802
  Receipt Date: 20190802
  Transmission Date: 20191004
  Serious: No
  Sender: FDA-Public Use
  Company Number: US-PFIZER INC-2019326642

PATIENT
  Age: 50 Year
  Sex: Male
  Weight: 63.49 kg

DRUGS (1)
  1. CHANTIX [Suspect]
     Active Substance: VARENICLINE TARTRATE
     Indication: SMOKING CESSATION THERAPY
     Dosage: 0.5 MG, 2X/DAY, [0.5 MG, ONE IN THE MORNING AND ONE IN THE EVENING]
     Route: 048
     Dates: start: 20190717

REACTIONS (1)
  - Erectile dysfunction [Unknown]
